FAERS Safety Report 23256992 (Version 2)
Quarter: 2023Q4

REPORT INFORMATION
  Report Type: Spontaneous
  Country: US (occurrence: US)
  Receive Date: 20231204
  Receipt Date: 20231215
  Transmission Date: 20240110
  Serious: Yes (Other)
  Sender: FDA-Public Use
  Company Number: US-CIPLA LTD.-2023US07471

PATIENT

DRUGS (17)
  1. ALBUTEROL [Suspect]
     Active Substance: ALBUTEROL
     Indication: Bronchitis
     Dosage: 2-3 PUFFS PER DAY OR AS NEEDED
     Dates: start: 20230224, end: 202303
  2. SERTRALINE [Concomitant]
     Active Substance: SERTRALINE HYDROCHLORIDE
     Indication: Anxiety
     Dosage: 100 MILLIGRAM ONE AND A HALF TABLET PER DAY
     Route: 065
     Dates: start: 2020
  3. SERTRALINE [Concomitant]
     Active Substance: SERTRALINE HYDROCHLORIDE
     Indication: Depression
  4. SERTRALINE [Concomitant]
     Active Substance: SERTRALINE HYDROCHLORIDE
     Indication: Post-traumatic stress disorder
  5. SERTRALINE [Concomitant]
     Active Substance: SERTRALINE HYDROCHLORIDE
     Indication: Bipolar disorder
  6. BUPROPION [Concomitant]
     Active Substance: BUPROPION
     Indication: Anxiety
     Dosage: 300 MILLIGRAM, QD (1 TABLET IN MORNING)
     Route: 065
     Dates: start: 2020
  7. BUPROPION [Concomitant]
     Active Substance: BUPROPION
     Indication: Depression
  8. BUPROPION [Concomitant]
     Active Substance: BUPROPION
     Indication: Post-traumatic stress disorder
  9. BUPROPION [Concomitant]
     Active Substance: BUPROPION
     Indication: Bipolar disorder
  10. OXCARBAZEPINE [Concomitant]
     Active Substance: OXCARBAZEPINE
     Indication: Anxiety
     Dosage: 300 MG/1 TABLET IN MORNING AND 2 TABLET AT NIGHT
     Route: 065
     Dates: start: 2020
  11. OXCARBAZEPINE [Concomitant]
     Active Substance: OXCARBAZEPINE
     Indication: Depression
  12. OXCARBAZEPINE [Concomitant]
     Active Substance: OXCARBAZEPINE
     Indication: Post-traumatic stress disorder
  13. OXCARBAZEPINE [Concomitant]
     Active Substance: OXCARBAZEPINE
     Indication: Bipolar disorder
  14. CLONAZEPAM [Concomitant]
     Active Substance: CLONAZEPAM
     Indication: Anxiety
     Dosage: 1 MG/1 TABLET IN MORNING AND 2 TABLET AT NIGHT
     Route: 065
     Dates: start: 2020
  15. CLONAZEPAM [Concomitant]
     Active Substance: CLONAZEPAM
     Indication: Depression
  16. CLONAZEPAM [Concomitant]
     Active Substance: CLONAZEPAM
     Indication: Post-traumatic stress disorder
  17. CLONAZEPAM [Concomitant]
     Active Substance: CLONAZEPAM
     Indication: Bipolar disorder

REACTIONS (8)
  - Loss of consciousness [Not Recovered/Not Resolved]
  - Dyspnoea exertional [Not Recovered/Not Resolved]
  - Dyspnoea [Not Recovered/Not Resolved]
  - Lung disorder [Not Recovered/Not Resolved]
  - Recalled product administered [Unknown]
  - Poor quality product administered [Unknown]
  - Product after taste [Unknown]
  - Adverse event [Unknown]

NARRATIVE: CASE EVENT DATE: 20230101
